FAERS Safety Report 16040384 (Version 1)
Quarter: 2019Q1

REPORT INFORMATION
  Report Type: Spontaneous
  Country: JP (occurrence: JP)
  Receive Date: 20190306
  Receipt Date: 20190306
  Transmission Date: 20190418
  Serious: Yes (Other)
  Sender: FDA-Public Use
  Company Number: JP-ROCHE-2277414

PATIENT
  Age: 76 Year
  Sex: Male

DRUGS (1)
  1. RANIBIZUMAB. [Suspect]
     Active Substance: RANIBIZUMAB
     Indication: AGE-RELATED MACULAR DEGENERATION
     Route: 031

REACTIONS (4)
  - Visual acuity reduced [Unknown]
  - Endophthalmitis [Unknown]
  - Anterior chamber inflammation [Unknown]
  - Corneal oedema [Unknown]
